FAERS Safety Report 17818867 (Version 3)
Quarter: 2020Q4

REPORT INFORMATION
  Report Type: Report from Study
  Country: FR (occurrence: FR)
  Receive Date: 20200523
  Receipt Date: 20201012
  Transmission Date: 20210113
  Serious: Yes (Hospitalization, Other)
  Sender: FDA-Public Use
  Company Number: FR-ROCHE-2604962

PATIENT
  Age: 53 Year
  Sex: Female
  Weight: 47 kg

DRUGS (9)
  1. CISPLATIN. [Suspect]
     Active Substance: CISPLATIN
     Indication: CERVIX CANCER METASTATIC
     Route: 042
     Dates: start: 20200115, end: 20200408
  2. LOSARTAN. [Concomitant]
     Active Substance: LOSARTAN
     Indication: HYPERTENSION
     Route: 048
  3. SOLUPRED (FRANCE) [Concomitant]
     Active Substance: PREDNISOLONE SODIUM METAZOATE
     Route: 048
     Dates: start: 20200419, end: 20200420
  4. EUPRESSYL [Concomitant]
     Active Substance: URAPIDIL
  5. EMEND [Concomitant]
     Active Substance: APREPITANT
     Dosage: 125-80 MG
     Route: 048
     Dates: start: 20200428
  6. PARACETAMOL [Concomitant]
     Active Substance: ACETAMINOPHEN
     Indication: PAIN
     Route: 048
  7. SOLUPRED (FRANCE) [Concomitant]
     Active Substance: PREDNISOLONE SODIUM METAZOATE
     Indication: NAUSEA
     Route: 048
     Dates: start: 20200428
  8. PACLITAXEL. [Suspect]
     Active Substance: PACLITAXEL
     Indication: CERVIX CANCER METASTATIC
     Route: 042
     Dates: start: 20200115, end: 20200429
  9. BEVACIZUMAB. [Suspect]
     Active Substance: BEVACIZUMAB
     Indication: CERVIX CANCER METASTATIC
     Route: 042
     Dates: start: 20200115, end: 20200429

REACTIONS (2)
  - Vomiting [Recovered/Resolved]
  - Ototoxicity [Recovered/Resolved with Sequelae]

NARRATIVE: CASE EVENT DATE: 20200324
